FAERS Safety Report 5209762-7 (Version None)
Quarter: 2006Q4

REPORT INFORMATION
  Report Type: 
  Country: None (occurrence: None)
  Receive Date: 20061116
  Receipt Date: 20060724
  Transmission Date: 20070319
  Serious: Yes (Hospitalization, Other)
  Sender: FDA-Public Use
  Company Number: 29138

PATIENT
  Age: 61 Year
  Sex: Female
  Weight: 80 kg

DRUGS (2)
  1. CISPLATIN [Suspect]
     Indication: OVARIAN CANCER
     Dates: start: 20020701
  2. ADRIAMYCIN PFS [Suspect]
     Dates: start: 20020701

REACTIONS (2)
  - LOCALISED INFECTION [None]
  - NEUROPATHY [None]
